FAERS Safety Report 10588628 (Version 1)
Quarter: 2014Q4

REPORT INFORMATION
  Report Type: Spontaneous
  Country: US (occurrence: US)
  Receive Date: 20141117
  Receipt Date: 20141117
  Transmission Date: 20150529
  Serious: No
  Sender: FDA-Public Use
  Company Number: US-PFIZER INC-2014314449

PATIENT
  Sex: Male

DRUGS (1)
  1. METHYLPREDNISOLONE ACETATE. [Suspect]
     Active Substance: METHYLPREDNISOLONE ACETATE

REACTIONS (3)
  - Rash [Recovered/Resolved]
  - Swelling face [Unknown]
  - Condition aggravated [Recovered/Resolved]
